FAERS Safety Report 6636689-6 (Version None)
Quarter: 2010Q1

REPORT INFORMATION
  Report Type: 
  Country: None (occurrence: None)
  Receive Date: 20100316
  Receipt Date: 20100309
  Transmission Date: 20100710
  Serious: Yes (Life-Threatening, Hospitalization, Disabling, Other)
  Sender: FDA-Public Use
  Company Number: B0313435A

PATIENT
  Age: 61 Year
  Sex: Female

DRUGS (5)
  1. ROSIGLITAZONE [Suspect]
     Dosage: 4MG TWICE PER DAY
     Route: 048
  2. METFORMIN HYDROCHLORIDE [Concomitant]
  3. LISINOPRIL [Concomitant]
  4. ARTHRO 7 [Concomitant]
     Indication: ARTHRITIS
  5. METHYL SULFONYL METHANE [Concomitant]
     Indication: ARTHRITIS

REACTIONS (10)
  - ACUTE HEPATIC FAILURE [None]
  - COAGULATION FACTOR DECREASED [None]
  - ENCEPHALOPATHY [None]
  - FATIGUE [None]
  - HEPATIC NECROSIS [None]
  - HEPATITIS FULMINANT [None]
  - JAUNDICE [None]
  - LIPOATROPHY [None]
  - MENTAL STATUS CHANGES [None]
  - TRANSAMINASES INCREASED [None]
